FAERS Safety Report 25525964 (Version 2)
Quarter: 2025Q3

REPORT INFORMATION
  Report Type: Report from Study
  Country: CA (occurrence: CA)
  Receive Date: 20250707
  Receipt Date: 20250725
  Transmission Date: 20251021
  Serious: Yes (Other)
  Sender: Karo Pharma
  Company Number: CA-Karo Pharma-2180056

PATIENT
  Age: 65 Year
  Sex: Male

DRUGS (1)
  1. LAMISIL [Suspect]
     Active Substance: TERBINAFINE HYDROCHLORIDE
     Indication: Product used for unknown indication

REACTIONS (9)
  - Skin fissures [Unknown]
  - Emphysema [Unknown]
  - Bone lesion [Unknown]
  - Xerosis [Unknown]
  - Nasal congestion [Unknown]
  - Pulmonary mass [Unknown]
  - Nasal turbinate abnormality [Unknown]
  - Intervertebral disc protrusion [Unknown]
  - Forced expiratory volume decreased [Unknown]
